FAERS Safety Report 6901766-9 (Version None)
Quarter: 2010Q3

REPORT INFORMATION
  Report Type: 
  Country: None (occurrence: None)
  Receive Date: 20100803
  Receipt Date: 20100722
  Transmission Date: 20110219
  Serious: Yes (Hospitalization)
  Sender: FDA-Public Use
  Company Number: US-ELI_LILLY_AND_COMPANY-US201007007275

PATIENT
  Sex: Female

DRUGS (12)
  1. ADCIRCA [Suspect]
  2. IMURAN [Concomitant]
  3. DOPAMINE HCL [Concomitant]
  4. LOVENOX [Concomitant]
  5. IRON [Concomitant]
  6. LASIX [Concomitant]
  7. PLAQUENIL [Concomitant]
  8. SYNTHROID [Concomitant]
  9. VERSED [Concomitant]
  10. PROTONIX [Concomitant]
  11. CRESTOR [Concomitant]
  12. ZOLOFT [Concomitant]

REACTIONS (1)
  - PULMONARY ARTERIAL HYPERTENSION [None]
